FAERS Safety Report 8567821-5 (Version None)
Quarter: 2012Q3

REPORT INFORMATION
  Report Type: 
  Country: None (occurrence: None)
  Receive Date: 20120803
  Receipt Date: 20120730
  Transmission Date: 20120928
  Serious: Yes (Life-Threatening, Hospitalization)
  Sender: FDA-Public Use
  Company Number: GB-PFIZER INC-2012124284

PATIENT
  Age: 77 Year
  Sex: Female

DRUGS (12)
  1. FUROSEMIDE [Concomitant]
  2. LANSOPRAZOLE [Concomitant]
  3. WARFARIN [Concomitant]
  4. ADCAL-D3 [Concomitant]
  5. ALENDRONATE SODIUM [Concomitant]
  6. SULFASALAZINE [Suspect]
     Indication: RHEUMATOID ARTHRITIS
     Dosage: GRADUALLY INCREASING DOSE TO 1G TWICE A DAY
     Route: 048
     Dates: start: 20120315, end: 20120428
  7. DIGOXIN [Concomitant]
  8. RAMIPRIL [Concomitant]
  9. SIMVASTATIN [Concomitant]
  10. KENALOG [Concomitant]
  11. PREDNISOLONE [Concomitant]
  12. BISOPROLOL [Concomitant]

REACTIONS (6)
  - PAIN IN EXTREMITY [None]
  - NEUTROPENIC SEPSIS [None]
  - RENAL FAILURE ACUTE [None]
  - STAPHYLOCOCCAL BACTERAEMIA [None]
  - CELLULITIS [None]
  - MALAISE [None]
